FAERS Safety Report 7605131-0 (Version None)
Quarter: 2011Q3

REPORT INFORMATION
  Report Type: 
  Country: None (occurrence: None)
  Receive Date: 20110713
  Receipt Date: 20110125
  Transmission Date: 20111222
  Serious: Yes (Other)
  Sender: FDA-Public Use
  Company Number: US-BAYER-200943350NA

PATIENT
  Age: 58 Year
  Sex: Male

DRUGS (10)
  1. PRINIVIL [Concomitant]
     Dosage: 5 MG, UNK
     Route: 048
  2. TRASYLOL [Suspect]
     Indication: CORONARY ARTERY BYPASS
  3. PROPOFOL [Concomitant]
     Dosage: UNK
  4. ACETYLSALICYLIC ACID SRT [Concomitant]
     Dosage: 81 MG, UNK
     Route: 048
  5. DOBUTAMINE HCL [Concomitant]
  6. PROTAMINE SULFATE [Concomitant]
  7. TRASYLOL [Suspect]
     Indication: CORONARY REVASCULARISATION
     Route: 042
     Dates: start: 20070521
  8. TOPROL-XL [Concomitant]
     Dosage: UNK
     Route: 048
  9. VALIUM [Concomitant]
  10. FENTANYL-100 [Concomitant]

REACTIONS (5)
  - INJURY [None]
  - PAIN [None]
  - RENAL FAILURE ACUTE [None]
  - RENAL FAILURE [None]
  - UNEVALUABLE EVENT [None]
